FAERS Safety Report 10177790 (Version 1)
Quarter: 2014Q2

REPORT INFORMATION
  Report Type: Spontaneous
  Country: US (occurrence: US)
  Receive Date: 20140516
  Receipt Date: 20140516
  Transmission Date: 20141212
  Serious: No
  Sender: FDA-Public Use
  Company Number: US-SANOFI-AVENTIS-2013SA087576

PATIENT
  Age: 40 Year
  Sex: Female

DRUGS (2)
  1. APIDRA [Suspect]
     Indication: TYPE 1 DIABETES MELLITUS
     Dosage: TAKEN FROM: 4 YEARS AGO.?DOSE: 15-80 UNITS.
     Route: 058
  2. APIDRA [Suspect]
     Indication: TYPE 1 DIABETES MELLITUS
     Dosage: TAKEN FROM: 4 YEARS AGO.?DOSE: 15-80 UNITS.
     Route: 058

REACTIONS (3)
  - Adverse event [Unknown]
  - Underdose [Unknown]
  - Incorrect product storage [Unknown]
